FAERS Safety Report 4737818-1 (Version None)
Quarter: 2005Q3

REPORT INFORMATION
  Report Type: 
  Country: None (occurrence: None)
  Receive Date: 20050802
  Receipt Date: 20050718
  Transmission Date: 20060218
  Serious: Yes (Life-Threatening, Hospitalization)
  Sender: FDA-Public Use
  Company Number: S03-341-228

PATIENT
  Age: 70 Year
  Sex: Male
  Weight: 62 kg

DRUGS (11)
  1. VELCADE [Suspect]
     Indication: MULTIPLE MYELOMA
     Dosage: 0.7 MG BIW, IV BOLUS
     Route: 040
     Dates: start: 20030213, end: 20030407
  2. FLUCONAZOLE [Concomitant]
  3. ZANTAC [Concomitant]
  4. ACETAMINOPHEN [Concomitant]
  5. ATROVENT [Concomitant]
  6. ADOLONTA [Concomitant]
  7. FUROSEMIDE [Concomitant]
  8. ZOLEDRONIC ACID [Concomitant]
  9. KETESSE [Concomitant]
  10. ALLOPURINOL [Concomitant]
  11. CIPROFLOXACIN [Concomitant]

REACTIONS (14)
  - ANOREXIA [None]
  - CONFUSIONAL STATE [None]
  - DRUG TOXICITY [None]
  - EPISTAXIS [None]
  - FATIGUE [None]
  - HEPATITIS TOXIC [None]
  - INSOMNIA [None]
  - MALAISE [None]
  - PNEUMONIA STAPHYLOCOCCAL [None]
  - PROTHROMBIN TIME PROLONGED [None]
  - RENAL FAILURE ACUTE [None]
  - RESPIRATORY FAILURE [None]
  - RESPIRATORY TRACT INFECTION [None]
  - SEPTIC SHOCK [None]
